FAERS Safety Report 17507684 (Version 1)
Quarter: 2020Q1

REPORT INFORMATION
  Report Type: Spontaneous
  Country: US (occurrence: US)
  Receive Date: 20200306
  Receipt Date: 20200306
  Transmission Date: 20200409
  Serious: No
  Sender: FDA-Public Use
  Company Number: US-ZYDUS-038710

PATIENT
  Sex: Female

DRUGS (1)
  1. DULOXETINE/DULOXETINE HYDROCHLORIDE [Suspect]
     Active Substance: DULOXETINE HYDROCHLORIDE
     Indication: FIBROMYALGIA
     Route: 048

REACTIONS (5)
  - Intentional product use issue [Recovered/Resolved]
  - Palpitations [Recovered/Resolved]
  - Musculoskeletal stiffness [Recovering/Resolving]
  - Product use in unapproved indication [Not Recovered/Not Resolved]
  - Sunburn [Recovered/Resolved]

NARRATIVE: CASE EVENT DATE: 2019
